FAERS Safety Report 21689421 (Version 1)
Quarter: 2022Q4

REPORT INFORMATION
  Report Type: Spontaneous
  Country: US (occurrence: US)
  Receive Date: 20221206
  Receipt Date: 20221206
  Transmission Date: 20230113
  Serious: Yes (Other)
  Sender: FDA-Public Use
  Company Number: US-CMP PHARMA-2022CMP00038

PATIENT
  Age: 6 Decade
  Sex: Female

DRUGS (1)
  1. MOXIFLOXACIN\TRIAMCINOLONE [Suspect]
     Active Substance: MOXIFLOXACIN\TRIAMCINOLONE
     Indication: Cataract operation
     Dosage: 0.1 ML, ONCE
     Route: 065

REACTIONS (1)
  - Haemorrhagic occlusive retinal vasculitis [Recovering/Resolving]
